FAERS Safety Report 10811187 (Version 1)
Quarter: 2015Q1

REPORT INFORMATION
  Report Type: Report from Study
  Country: US (occurrence: US)
  Receive Date: 20150217
  Receipt Date: 20150217
  Transmission Date: 20150721
  Serious: No
  Sender: FDA-Public Use
  Company Number: US-ABBVIE-14K-163-1212402-00

PATIENT
  Age: 49 Year
  Sex: Male
  Weight: 99.88 kg

DRUGS (10)
  1. ZYPREXA [Concomitant]
     Active Substance: OLANZAPINE
     Indication: DEPRESSION
     Dosage: EVERY EVENING
  2. ZYPREXA [Concomitant]
     Active Substance: OLANZAPINE
     Indication: POST-TRAUMATIC STRESS DISORDER
  3. HUMIRA [Suspect]
     Active Substance: ADALIMUMAB
     Dates: start: 201312
  4. ALEVE [Concomitant]
     Active Substance: NAPROXEN SODIUM
     Indication: BACK PAIN
  5. XANAX [Concomitant]
     Active Substance: ALPRAZOLAM
     Indication: ANXIETY
     Dosage: AT BED TIME
  6. HUMIRA [Suspect]
     Active Substance: ADALIMUMAB
     Indication: PSORIASIS
     Dates: start: 20131209, end: 20131209
  7. ALEVE [Concomitant]
     Active Substance: NAPROXEN SODIUM
     Indication: HEADACHE
  8. XANAX [Concomitant]
     Active Substance: ALPRAZOLAM
     Indication: INSOMNIA
  9. ZYPREXA [Concomitant]
     Active Substance: OLANZAPINE
     Indication: ANXIETY
  10. XANAX [Concomitant]
     Active Substance: ALPRAZOLAM
     Indication: POST-TRAUMATIC STRESS DISORDER

REACTIONS (2)
  - Skin exfoliation [Recovering/Resolving]
  - Psoriasis [Recovering/Resolving]

NARRATIVE: CASE EVENT DATE: 201312
